FAERS Safety Report 7801610-1 (Version None)
Quarter: 2011Q4

REPORT INFORMATION
  Report Type: 
  Country: None (occurrence: None)
  Receive Date: 20111007
  Receipt Date: 20100528
  Transmission Date: 20120403
  Serious: Yes (Hospitalization, Other)
  Sender: FDA-Public Use
  Company Number: JP-RANBAXY-2010RR-32957

PATIENT
  Age: 74 Year
  Sex: Female
  Weight: 38 kg

DRUGS (13)
  1. DEXMEDETOMIDINE HYDROCHLORIDE [Suspect]
     Dosage: 0.26 UG/KG, Q1H
     Route: 065
  2. VECURONIUM BROMIDE [Suspect]
     Indication: HYPOTONIA
     Dosage: 6 MG, UNK
     Route: 065
  3. MIDAZOLAM HCL [Suspect]
     Indication: ANAESTHESIA
     Dosage: 6 MG, UNK
     Route: 065
  4. REMIFENTANIL [Suspect]
     Indication: ANAESTHESIA
     Dosage: 0.1-0.5 KG/MIN
     Route: 065
  5. PROPOFOL [Concomitant]
     Dosage: 80 MG, Q1H
     Route: 065
  6. HYDROXYZINE [Concomitant]
     Indication: INSOMNIA
     Dosage: 25 MG, UNK
     Route: 065
  7. DEXMEDETOMIDINE HYDROCHLORIDE [Suspect]
     Indication: SEDATION
     Dosage: 0.26 UG/KG, Q1H
     Route: 065
  8. FENTANYL [Suspect]
     Indication: ANAESTHESIA
     Dosage: 200 UG, UNK
     Route: 065
  9. PROPOFOL [Concomitant]
     Indication: ANAESTHESIA
     Dosage: 4 MG/KG, Q1H
     Route: 065
  10. DEXMEDETOMIDINE HYDROCHLORIDE [Suspect]
     Dosage: 0.52 UG/KG, Q1H
     Route: 065
  11. SEVOFLURANE [Suspect]
     Indication: ANAESTHESIA
     Dosage: 1-1.5%
     Route: 065
  12. FENTANYL [Concomitant]
     Indication: PRODUCT USED FOR UNKNOWN INDICATION
     Dosage: 50 UG, Q1H
     Route: 065
  13. HALOPERIDOL [Concomitant]
     Indication: INSOMNIA
     Dosage: 2.5 MG, UNK
     Route: 065

REACTIONS (3)
  - DRUG INTERACTION [None]
  - APNOEA [None]
  - RESPIRATORY DEPRESSION [None]
